FAERS Safety Report 8025109-5 (Version None)
Quarter: 2012Q1

REPORT INFORMATION
  Report Type: 
  Country: None (occurrence: None)
  Receive Date: 20120105
  Receipt Date: 20120103
  Transmission Date: 20120608
  Serious: Yes (Death, Other)
  Sender: FDA-Public Use
  Company Number: US-AMGEN-USASP2011050621

PATIENT
  Sex: Female
  Weight: 86 kg

DRUGS (6)
  1. NPLATE [Suspect]
     Indication: IDIOPATHIC THROMBOCYTOPENIC PURPURA
     Dosage: 7 MUG/KG, QWK
     Dates: start: 20110408, end: 20110617
  2. EFFEXOR [Concomitant]
     Indication: DEPRESSION
     Dosage: 75 MG, QD
     Route: 048
     Dates: start: 20100510, end: 20110725
  3. NPLATE [Suspect]
  4. NPLATE [Suspect]
     Dosage: UNK
  5. DECADRON [Concomitant]
     Indication: OEDEMA
     Dosage: 16 MG, BID
     Route: 048
     Dates: start: 20100918, end: 20110725
  6. ROZEREM [Concomitant]
     Indication: SLEEP DISORDER
     Dosage: 8 MG, QHS
     Dates: start: 20110605, end: 20110725

REACTIONS (3)
  - CONDITION AGGRAVATED [None]
  - BRAIN NEOPLASM MALIGNANT [None]
  - DRUG INEFFECTIVE [None]
